FAERS Safety Report 4663963-5 (Version None)
Quarter: 2005Q2

REPORT INFORMATION
  Report Type: 
  Country: None (occurrence: None)
  Receive Date: 20050429
  Receipt Date: 20050124
  Transmission Date: 20051028
  Serious: Yes (Other)
  Sender: FDA-Public Use
  Company Number: 2004228270US

PATIENT
  Age: 72 Year
  Sex: Female
  Weight: 62.13 kg

DRUGS (4)
  1. GLYNASE [Suspect]
     Indication: DIABETES MELLITUS
     Dosage: SEE IMAGE
     Route: 048
     Dates: start: 19930101
  2. ATORVASTATIN CALCIUM [Concomitant]
  3. VALSARTAN [Concomitant]
  4. VERAPAMIL [Concomitant]

REACTIONS (2)
  - BLOOD GLUCOSE DECREASED [None]
  - BLOOD GLUCOSE FLUCTUATION [None]
